FAERS Safety Report 23985243 (Version 1)
Quarter: 2024Q2

REPORT INFORMATION
  Report Type: Spontaneous
  Country: BR (occurrence: BR)
  Receive Date: 20240618
  Receipt Date: 20240618
  Transmission Date: 20240716
  Serious: Yes (Other)
  Sender: FDA-Public Use
  Company Number: BR-002147023-NVSC2024BR125592

PATIENT
  Sex: Male

DRUGS (4)
  1. BETOPTIC [Suspect]
     Active Substance: BETAXOLOL HYDROCHLORIDE
     Indication: Glaucoma
     Dosage: 5 ML BID (IN THE MORNING AND AT NIGHT EVERY 12 HOURS), (0.5% BOTTLE SOLUTION WITH 5ML) (IN HIS LEFT
     Route: 065
  2. BETOPTIC [Suspect]
     Active Substance: BETAXOLOL HYDROCHLORIDE
     Dosage: 5.6 MG
     Route: 065
  3. BRINZOLAMIDE\TIMOLOL MALEATE [Suspect]
     Active Substance: BRINZOLAMIDE\TIMOLOL MALEATE
     Indication: Product used for unknown indication
     Dosage: UNK
     Route: 065
  4. AZOPT [Suspect]
     Active Substance: BRINZOLAMIDE
     Indication: Product used for unknown indication
     Dosage: 5 ML
     Route: 065

REACTIONS (4)
  - Blindness [Not Recovered/Not Resolved]
  - Cataract [Unknown]
  - Eye infection [Not Recovered/Not Resolved]
  - Product supply issue [Unknown]

NARRATIVE: CASE EVENT DATE: 20010101
